FAERS Safety Report 24112669 (Version 3)
Quarter: 2025Q3

REPORT INFORMATION
  Report Type: Spontaneous
  Country: EU (occurrence: EU)
  Receive Date: 20240719
  Receipt Date: 20250809
  Transmission Date: 20251021
  Serious: Yes (Hospitalization, Other)
  Sender: ALEXION PHARMACEUTICALS
  Company Number: 2024A165023

PATIENT
  Age: 67 Year
  Sex: Female
  Weight: 69.1 kg

DRUGS (43)
  1. OMEPRAZOLE [Suspect]
     Active Substance: OMEPRAZOLE
     Indication: Product used for unknown indication
     Route: 065
  2. ETOPOSIDE [Suspect]
     Active Substance: ETOPOSIDE
     Indication: Diffuse large B-cell lymphoma stage I
     Route: 065
     Dates: start: 20240205, end: 20240207
  3. ETOPOSIDE [Suspect]
     Active Substance: ETOPOSIDE
     Dates: start: 20240320, end: 20240322
  4. ETOPOSIDE [Suspect]
     Active Substance: ETOPOSIDE
     Dates: start: 20240423, end: 20240425
  5. CARBOPLATIN [Concomitant]
     Active Substance: CARBOPLATIN
     Indication: Diffuse large B-cell lymphoma stage I
     Route: 065
     Dates: start: 20240206, end: 20240206
  6. CARBOPLATIN [Concomitant]
     Active Substance: CARBOPLATIN
     Dates: start: 20240321, end: 20240321
  7. CARBOPLATIN [Concomitant]
     Active Substance: CARBOPLATIN
  8. SULFAMETHOXAZOLE [Concomitant]
     Active Substance: SULFAMETHOXAZOLE
     Indication: Product used for unknown indication
  9. IFOSFAMIDE [Concomitant]
     Active Substance: IFOSFAMIDE
     Indication: Diffuse large B-cell lymphoma stage I
     Dates: start: 20240206, end: 20240322
  10. IFOSFAMIDE [Concomitant]
     Active Substance: IFOSFAMIDE
     Dates: start: 20240321, end: 20240322
  11. IFOSFAMIDE [Concomitant]
     Active Substance: IFOSFAMIDE
     Dates: start: 20240424, end: 20240425
  12. TRAMADOL [Concomitant]
     Active Substance: TRAMADOL
     Indication: Product used for unknown indication
  13. PREGABALIN [Concomitant]
     Active Substance: PREGABALIN
     Indication: Product used for unknown indication
  14. PREGABALIN [Concomitant]
     Active Substance: PREGABALIN
  15. PREGABALIN [Concomitant]
     Active Substance: PREGABALIN
  16. PREGABALIN [Concomitant]
     Active Substance: PREGABALIN
  17. APIXABAN [Concomitant]
     Active Substance: APIXABAN
     Indication: Product used for unknown indication
  18. ACYCLOVIR [Concomitant]
     Active Substance: ACYCLOVIR
     Indication: Product used for unknown indication
  19. CALCIUM GLUCONATE [Concomitant]
     Active Substance: CALCIUM GLUCONATE
     Indication: Product used for unknown indication
  20. ACETAMINOPHEN [Concomitant]
     Active Substance: ACETAMINOPHEN
     Indication: Product used for unknown indication
  21. ACETAMINOPHEN [Concomitant]
     Active Substance: ACETAMINOPHEN
     Dates: start: 20240408, end: 20240408
  22. ACETAMINOPHEN [Concomitant]
     Active Substance: ACETAMINOPHEN
     Dates: start: 20240408, end: 20240408
  23. ACETAMINOPHEN [Concomitant]
     Active Substance: ACETAMINOPHEN
     Dates: start: 20240425, end: 20240425
  24. LORAZEPAM [Concomitant]
     Active Substance: LORAZEPAM
     Indication: Product used for unknown indication
  25. LORAZEPAM [Concomitant]
     Active Substance: LORAZEPAM
  26. LORAZEPAM [Concomitant]
     Active Substance: LORAZEPAM
  27. TRIMETHOPRIM [Concomitant]
     Active Substance: TRIMETHOPRIM
     Indication: Product used for unknown indication
  28. DEXCHLORPHENIRAMINE [Concomitant]
     Active Substance: DEXCHLORPHENIRAMINE
     Indication: Product used for unknown indication
     Dates: start: 20240408, end: 20240408
  29. DEXCHLORPHENIRAMINE [Concomitant]
     Active Substance: DEXCHLORPHENIRAMINE
  30. DEXCHLORPHENIRAMINE [Concomitant]
     Active Substance: DEXCHLORPHENIRAMINE
     Dates: start: 20240425, end: 20240425
  31. EPCORITAMAB [Concomitant]
     Active Substance: EPCORITAMAB
     Indication: Diffuse large B-cell lymphoma stage I
     Dates: start: 20240207, end: 20240207
  32. EPCORITAMAB [Concomitant]
     Active Substance: EPCORITAMAB
     Dates: start: 20240229, end: 20240229
  33. EPCORITAMAB [Concomitant]
     Active Substance: EPCORITAMAB
     Dates: start: 20240314, end: 20240314
  34. RITUXIMAB [Concomitant]
     Active Substance: RITUXIMAB
     Indication: Diffuse large B-cell lymphoma stage I
     Dates: start: 20240205, end: 20240205
  35. RITUXIMAB [Concomitant]
     Active Substance: RITUXIMAB
     Dates: start: 20240320, end: 20240320
  36. RITUXIMAB [Concomitant]
     Active Substance: RITUXIMAB
  37. ERGOCALCIFEROL [Concomitant]
     Active Substance: ERGOCALCIFEROL
  38. ONDANSETRON [Concomitant]
     Active Substance: ONDANSETRON
     Dates: start: 20240506, end: 20240506
  39. METAMIZOLE [Concomitant]
     Active Substance: METAMIZOLE
     Dates: start: 20240506, end: 20240506
  40. MAGNESIUM SULFATE [Concomitant]
     Active Substance: MAGNESIUM SULFATE
     Indication: Product used for unknown indication
     Dates: start: 20240506, end: 20240506
  41. TAZOBACTAM [Concomitant]
     Active Substance: TAZOBACTAM
     Indication: Product used for unknown indication
     Dates: start: 20240506, end: 20240509
  42. METOCLOPRAMIDE HYDROCHLORIDE [Concomitant]
     Active Substance: METOCLOPRAMIDE HYDROCHLORIDE
     Indication: Product used for unknown indication
     Dates: start: 20240506, end: 20240509
  43. PIPERACILLIN [Concomitant]
     Active Substance: PIPERACILLIN
     Indication: Product used for unknown indication
     Dates: start: 20240506, end: 20240509

REACTIONS (1)
  - Febrile neutropenia [Recovered/Resolved]

NARRATIVE: CASE EVENT DATE: 20240506
